FAERS Safety Report 15959375 (Version 2)
Quarter: 2019Q2

REPORT INFORMATION
  Report Type: Spontaneous
  Country: US (occurrence: US)
  Receive Date: 20190214
  Receipt Date: 20190403
  Transmission Date: 20190711
  Serious: Yes (Hospitalization, Other)
  Sender: FDA-Public Use
  Company Number: US-SA-2019SA040151

PATIENT
  Age: 81 Year

DRUGS (15)
  1. WARFARIN SODIUM. [Suspect]
     Active Substance: WARFARIN SODIUM
     Indication: DEEP VEIN THROMBOSIS
  2. METOPROLOL TARTRATE. [Concomitant]
     Active Substance: METOPROLOL TARTRATE
     Dosage: 25 MG, BID
  3. APIXABAN [Suspect]
     Active Substance: APIXABAN
     Indication: ANTICOAGULANT THERAPY
     Dosage: 5 MG, BID
  4. AMLODIPINE [Concomitant]
     Active Substance: AMLODIPINE BESYLATE
  5. SULFAMETHOXAZOLE/TRIMETHOPRIM [Suspect]
     Active Substance: SULFAMETHOXAZOLE\TRIMETHOPRIM
     Indication: URINARY TRACT INFECTION
     Dosage: UNK
  6. WARFARIN SODIUM. [Suspect]
     Active Substance: WARFARIN SODIUM
     Indication: PROPHYLAXIS
     Dosage: BRIDGING TOWARFARIN WAS INITIATED BECAUSE OF EVIDENCE OF CHRONIC LEFT LOWER EXTREMITY DVT
  7. DILTIAZEM. [Concomitant]
     Active Substance: DILTIAZEM
     Dosage: DILTIAZEM  TAPERED
  8. RIFAMPICIN [Suspect]
     Active Substance: RIFAMPIN
     Indication: OSTEOMYELITIS
     Dosage: 300 MG, BID
  9. LEVOTHYROXINE. [Concomitant]
     Active Substance: LEVOTHYROXINE
  10. DILTIAZEM. [Concomitant]
     Active Substance: DILTIAZEM
  11. APIXABAN [Suspect]
     Active Substance: APIXABAN
     Dosage: IT WAS ASSUMED THAT THE PATIENT COULD BE TRANSITIONED TO APIXABAN BECAUSE RIFAMPIN HAD BEEN DISCONTI
  12. APIXABAN [Suspect]
     Active Substance: APIXABAN
     Dosage: ONCE DEINDUCTION OF RIFAMPIN
  13. APIXABAN [Suspect]
     Active Substance: APIXABAN
     Dosage: SWITCHED WARFARIN TO APIXABAN BECAUSE IT REQUIRES LESS MEDICATION MONITORING.
  14. OXYBUTYNIN. [Concomitant]
     Active Substance: OXYBUTYNIN CHLORIDE
  15. DOXYCYCLINE. [Concomitant]
     Active Substance: DOXYCYCLINE

REACTIONS (2)
  - Drug interaction [Unknown]
  - Embolism [Unknown]
